FAERS Safety Report 13694756 (Version 1)
Quarter: 2017Q2

REPORT INFORMATION
  Report Type: Spontaneous
  Country: JP (occurrence: JP)
  Receive Date: 20170627
  Receipt Date: 20170627
  Transmission Date: 20170830
  Serious: Yes (Death)
  Sender: FDA-Public Use
  Company Number: JP-DSJP-DSJ-2017-117431

PATIENT
  Age: 8 Decade
  Sex: Male

DRUGS (2)
  1. LIXIANA TABLETS [Suspect]
     Active Substance: EDOXABAN TOSYLATE
     Indication: HEPATIC ENCEPHALOPATHY
     Dosage: 60 MG, TID
     Route: 048
     Dates: start: 20170428, end: 20170430
  2. LIXIANA TABLETS [Suspect]
     Active Substance: EDOXABAN TOSYLATE
     Indication: DRUG DISPENSING ERROR

REACTIONS (3)
  - Drug dispensing error [Fatal]
  - Overdose [Fatal]
  - Gastrointestinal haemorrhage [Fatal]

NARRATIVE: CASE EVENT DATE: 20170501
